FAERS Safety Report 11057815 (Version 3)
Quarter: 2015Q2

REPORT INFORMATION
  Report Type: Spontaneous
  Country: GB (occurrence: GB)
  Receive Date: 20150423
  Receipt Date: 20150603
  Transmission Date: 20150821
  Serious: Yes (Other)
  Sender: FDA-Public Use
  Company Number: GB-ROCHE-1566290

PATIENT
  Age: 26 Year
  Sex: Female

DRUGS (2)
  1. HERCEPTIN [Suspect]
     Active Substance: TRASTUZUMAB
     Indication: BREAST CANCER
     Route: 058
  2. TAXOTERE [Concomitant]
     Active Substance: DOCETAXEL

REACTIONS (3)
  - Pain [Recovered/Resolved]
  - Discomfort [Unknown]
  - Peripheral swelling [Unknown]
